FAERS Safety Report 9011112 (Version 1)
Quarter: 2013Q1

REPORT INFORMATION
  Report Type: Spontaneous
  Country: US (occurrence: US)
  Receive Date: 20130109
  Receipt Date: 20130109
  Transmission Date: 20140127
  Serious: Yes (Other)
  Sender: FDA-Public Use
  Company Number: PHEH2013US000599

PATIENT
  Sex: Female
  Weight: 58 kg

DRUGS (15)
  1. RECLAST [Suspect]
     Indication: OSTEOPOROSIS
     Dosage: 5 MG/100 ML SOLUTION ONCE YEARLY
     Route: 042
     Dates: start: 20121115
  2. TRIAMTERENE AND HYDROCHLOROTHIAZID [Concomitant]
     Dosage: UKN, QD
  3. MIRALAX [Concomitant]
     Dosage: 17 MG, QD
  4. METAMUCIL [Concomitant]
     Dosage: 1 MG, UNK
  5. MAGNESIUM AMINO ACID CHELATE [Concomitant]
     Dosage: 100 MG, TID
  6. EVENING PRIMROSE OIL [Concomitant]
     Dosage: UKN, QD
  7. LEVOTHYROXINE [Concomitant]
     Dosage: 25 UG, QD
  8. GABAPENIN [Concomitant]
     Dosage: 300 MG, BID
  9. FISH OIL [Concomitant]
  10. BENADRYL [Concomitant]
     Dosage: 25 MG, QD
  11. ASA [Concomitant]
     Dosage: 81 MG, QD
  12. MULTI-VIT [Concomitant]
     Dosage: UKN, QD
  13. PROPANOLOL [Concomitant]
     Dosage: 1/2 TABLET QD
  14. ROBAXIN [Concomitant]
     Dosage: 750 MG, QD
  15. OMEPRAZOLE [Concomitant]
     Dosage: 40 MG, QD

REACTIONS (9)
  - Sjogren^s syndrome [Unknown]
  - Epicondylitis [Unknown]
  - Hepatic enzyme increased [Unknown]
  - Arthritis [Unknown]
  - Arthralgia [Unknown]
  - Joint swelling [Unknown]
  - Back pain [Unknown]
  - Paraesthesia [Unknown]
  - Rash [Unknown]
